FAERS Safety Report 4542200-6 (Version None)
Quarter: 2004Q4

REPORT INFORMATION
  Report Type: 
  Country: None (occurrence: None)
  Receive Date: 20041227
  Receipt Date: 20041216
  Transmission Date: 20050328
  Serious: Yes (Death, Hospitalization)
  Sender: FDA-Public Use
  Company Number: 163-20785-04090295

PATIENT
  Age: 72 Year
  Sex: Male
  Weight: 72.58 kg

DRUGS (3)
  1. THALOMID [Suspect]
     Indication: MALIGNANT MELANOMA
     Dosage: 100 MG/DAY X 2WKS INCREASED BY 50 MG/DAY Q 2KS TO 200 MG DAILY; AN 8 WK CYCLE, ORAL
     Route: 048
     Dates: start: 20040831, end: 20040911
  2. THALOMID [Suspect]
     Indication: METASTASES TO CENTRAL NERVOUS SYSTEM
     Dosage: 100 MG/DAY X 2WKS INCREASED BY 50 MG/DAY Q 2KS TO 200 MG DAILY; AN 8 WK CYCLE, ORAL
     Route: 048
     Dates: start: 20040831, end: 20040911
  3. TEMOZOLOMIDE (TEMOZOLOMIDE) [Suspect]
     Indication: MALIGNANT MELANOMA
     Dosage: 75 MG/M2, DAILY X 6 WEEKS; AN 8 CYCLE, ORAL
     Route: 048
     Dates: start: 20040831, end: 20040911

REACTIONS (13)
  - BLOOD ALBUMIN DECREASED [None]
  - BLOOD ALKALINE PHOSPHATASE INCREASED [None]
  - BLOOD CALCIUM DECREASED [None]
  - BLOOD CREATININE DECREASED [None]
  - BLOOD SODIUM DECREASED [None]
  - DISEASE PROGRESSION [None]
  - DRUG LEVEL DECREASED [None]
  - HAEMORRHAGIC STROKE [None]
  - NEUTROPHIL COUNT INCREASED [None]
  - PROTEIN TOTAL DECREASED [None]
  - PULMONARY EMBOLISM [None]
  - RED BLOOD CELL COUNT DECREASED [None]
  - WHITE BLOOD CELL COUNT INCREASED [None]
